FAERS Safety Report 4302525-6 (Version None)
Quarter: 2004Q1

REPORT INFORMATION
  Report Type: 
  Country: None (occurrence: None)
  Receive Date: 20040220
  Receipt Date: 20040206
  Transmission Date: 20041129
  Serious: Yes (Hospitalization, Other)
  Sender: FDA-Public Use
  Company Number: 2003034487

PATIENT
  Sex: Male
  Weight: 81.6475 kg

DRUGS (4)
  1. LIPITOR [Suspect]
     Indication: BLOOD CHOLESTEROL INCREASED
     Dosage: 10 MG (DAILY), ORAL
     Route: 048
     Dates: start: 20020101, end: 20030624
  2. DILANTIN [Suspect]
     Indication: CONVULSION
     Dosage: 400 MG (DAILY), ORAL
     Route: 048
     Dates: start: 20030627, end: 20030807
  3. ZITHROMAX [Suspect]
     Indication: PHARYNGITIS
     Dosage: ORAL
     Route: 048
     Dates: start: 20030730, end: 20030803
  4. LEVAQUIN [Concomitant]

REACTIONS (22)
  - ALANINE AMINOTRANSFERASE INCREASED [None]
  - ANOREXIA [None]
  - APHASIA [None]
  - ARTHRALGIA [None]
  - ASPARTATE AMINOTRANSFERASE INCREASED [None]
  - ASTHENIA [None]
  - BLOOD POTASSIUM DECREASED [None]
  - DRUG INEFFECTIVE [None]
  - DRUG TOXICITY [None]
  - DYSPNOEA [None]
  - GAMMA-GLUTAMYLTRANSFERASE INCREASED [None]
  - GRAND MAL CONVULSION [None]
  - HAEMATOMA [None]
  - INJURY [None]
  - LYMPHADENOPATHY [None]
  - PHARYNGITIS STREPTOCOCCAL [None]
  - PYREXIA [None]
  - RASH GENERALISED [None]
  - SIMPLE PARTIAL SEIZURES [None]
  - SWELLING FACE [None]
  - VIRAL INFECTION [None]
  - WEIGHT DECREASED [None]
